FAERS Safety Report 10226776 (Version 1)
Quarter: 2014Q2

REPORT INFORMATION
  Report Type: Spontaneous
  Country: US (occurrence: US)
  Receive Date: 20140610
  Receipt Date: 20140610
  Transmission Date: 20141212
  Serious: No
  Sender: FDA-Public Use
  Company Number: US-009507513-1405USA011692

PATIENT
  Sex: Female

DRUGS (1)
  1. NEXPLANON [Suspect]
     Dosage: 68 MG, ONE ROD EVERY 3 YEARS
     Route: 059
     Dates: start: 20131118

REACTIONS (2)
  - Device breakage [Not Recovered/Not Resolved]
  - No adverse event [Unknown]
